FAERS Safety Report 23143133 (Version 1)
Quarter: 2023Q4

REPORT INFORMATION
  Report Type: Report from Study
  Country: US (occurrence: None)
  Receive Date: 20231103
  Receipt Date: 20231103
  Transmission Date: 20240110
  Serious: Yes (Hospitalization)
  Sender: FDA-Public Use
  Company Number: 2023A249881

PATIENT
  Sex: Female
  Weight: 79.4 kg

DRUGS (3)
  1. LYNPARZA [Suspect]
     Active Substance: OLAPARIB
     Indication: Ovarian cancer
     Route: 048
     Dates: start: 20230530
  2. AVASTIN [Concomitant]
     Active Substance: BEVACIZUMAB
  3. LOSARTAN POTASSIUM [Concomitant]
     Active Substance: LOSARTAN POTASSIUM

REACTIONS (3)
  - Gastrointestinal infection [Recovering/Resolving]
  - Nodule [Unknown]
  - Taste disorder [Unknown]
